FAERS Safety Report 7083002-9 (Version None)
Quarter: 2010Q4

REPORT INFORMATION
  Report Type: 
  Country: None (occurrence: None)
  Receive Date: 20101104
  Receipt Date: 20101027
  Transmission Date: 20110411
  Serious: Yes (Hospitalization, Other)
  Sender: FDA-Public Use
  Company Number: FR-SANOFI-AVENTIS-2010SA065382

PATIENT
  Age: 82 Year
  Sex: Female

DRUGS (10)
  1. INDAPAMIDE [Interacting]
     Route: 048
     Dates: end: 20100821
  2. AMITRIPTYLINE HCL [Suspect]
     Route: 048
     Dates: start: 20100808, end: 20100821
  3. OXYCONTIN [Suspect]
     Route: 048
     Dates: start: 20100816, end: 20100821
  4. PREVISCAN [Suspect]
     Route: 048
     Dates: end: 20100821
  5. CORDARONE [Suspect]
     Route: 048
  6. TAHOR [Suspect]
     Route: 048
  7. ZOPICLONE [Suspect]
     Route: 048
  8. BISOPROLOL [Suspect]
     Route: 048
  9. DICLOFENAC SODIUM [Interacting]
     Route: 048
     Dates: end: 20100821
  10. APROVEL [Interacting]
     Route: 048

REACTIONS (9)
  - C-REACTIVE PROTEIN INCREASED [None]
  - COGNITIVE DISORDER [None]
  - CONDITION AGGRAVATED [None]
  - CONFUSIONAL STATE [None]
  - DISORIENTATION [None]
  - DRUG INTERACTION [None]
  - HYPERTHERMIA [None]
  - INFLAMMATION [None]
  - RENAL FAILURE ACUTE [None]
